FAERS Safety Report 18592361 (Version 13)
Quarter: 2021Q2

REPORT INFORMATION
  Report Type: Report from Study
  Country: JP (occurrence: JP)
  Receive Date: 20201208
  Receipt Date: 20210405
  Transmission Date: 20210717
  Serious: Yes (Hospitalization)
  Sender: FDA-Public Use
  Company Number: JP-EISAI MEDICAL RESEARCH-EC-2020-083756

PATIENT
  Age: 59 Year
  Sex: Male
  Weight: 64.3 kg

DRUGS (22)
  1. PEMBROLIZUMAB. [Suspect]
     Active Substance: PEMBROLIZUMAB
     Indication: NON-SMALL CELL LUNG CANCER
     Route: 041
     Dates: start: 20200925, end: 20201016
  2. LYRICA [Concomitant]
     Active Substance: PREGABALIN
     Dates: start: 20200814
  3. HEPARINOID [Concomitant]
     Active Substance: CHONDROITIN SULFATE (BOVINE)
     Dates: start: 20201009
  4. PEMBROLIZUMAB. [Suspect]
     Active Substance: PEMBROLIZUMAB
     Route: 041
     Dates: start: 20201130, end: 20201130
  5. PARIET [Concomitant]
     Active Substance: RABEPRAZOLE SODIUM
     Route: 048
     Dates: start: 20200817
  6. SENNOSIDES. [Concomitant]
     Active Substance: SENNOSIDES
     Dates: start: 20200817
  7. LUNESTA [Concomitant]
     Active Substance: ESZOPICLONE
     Dates: start: 20200814
  8. DENOTAS CHEWABLE COMBINATION TABLETS [Concomitant]
     Active Substance: CALCIUM CARBONATE\CHOLECALCIFEROL\MAGNESIUM CARBONATE
     Dates: start: 20200825
  9. TENELIA [Concomitant]
     Active Substance: TENELIGLIPTIN
     Dates: start: 20200926
  10. LENVATINIB [Suspect]
     Active Substance: LENVATINIB
     Indication: NON-SMALL CELL LUNG CANCER
     Route: 048
     Dates: start: 20200925
  11. PEMBROLIZUMAB. [Suspect]
     Active Substance: PEMBROLIZUMAB
     Route: 041
     Dates: start: 20201106, end: 20201106
  12. PEMBROLIZUMAB. [Suspect]
     Active Substance: PEMBROLIZUMAB
     Route: 041
     Dates: start: 20201218
  13. NARUSUS [Concomitant]
     Active Substance: HYDROMORPHONE HYDROCHLORIDE
     Dates: start: 20200901
  14. NARURAPID [Concomitant]
     Active Substance: HYDROMORPHONE HYDROCHLORIDE
     Dates: start: 20200901
  15. BETAMETHASONE BUTYRATE PROPIONATE [Concomitant]
     Active Substance: BETAMETHASONE BUTYRATE PROPIONATE
     Dates: start: 20201009
  16. MAGNESIUM OXIDE. [Concomitant]
     Active Substance: MAGNESIUM OXIDE
     Dates: start: 20200821
  17. SYMPROIC [Concomitant]
     Active Substance: NALDEMEDINE
     Dates: start: 20200819
  18. CELECOX [Concomitant]
     Active Substance: CELECOXIB
     Dates: start: 20200819
  19. OLOPATADINE HYDROCHLORIDE TOWA [Concomitant]
     Dates: start: 20201016
  20. CALONAL [Concomitant]
     Active Substance: ACETAMINOPHEN
     Dates: start: 20200811
  21. SATOLSALBE [Concomitant]
     Dates: start: 20201029
  22. CLOBETASOL PROPIONATE. [Concomitant]
     Active Substance: CLOBETASOL PROPIONATE
     Dates: start: 20201029

REACTIONS (3)
  - Lower gastrointestinal haemorrhage [Recovered/Resolved]
  - Pneumonia [Recovered/Resolved]
  - Malaise [Recovering/Resolving]

NARRATIVE: CASE EVENT DATE: 20201106
